FAERS Safety Report 4809754-3 (Version None)
Quarter: 2005Q4

REPORT INFORMATION
  Report Type: 
  Country: None (occurrence: None)
  Receive Date: 20051024
  Receipt Date: 20051004
  Transmission Date: 20060501
  Serious: No
  Sender: FDA-Public Use
  Company Number: USA0510110032

PATIENT
  Age: 40 Year
  Sex: Female

DRUGS (3)
  1. STRATTERA [Suspect]
     Dosage: 25 MG
     Dates: start: 20050929, end: 20051001
  2. LAMICTAL [Concomitant]
  3. ZOLOFT [Concomitant]

REACTIONS (1)
  - JAUNDICE [None]
